FAERS Safety Report 5905432-8 (Version None)
Quarter: 2008Q4

REPORT INFORMATION
  Report Type: 
  Country: None (occurrence: None)
  Receive Date: 20081001
  Receipt Date: 20081001
  Transmission Date: 20090506
  Serious: No
  Sender: FDA-Public Use
  Company Number: None

PATIENT
  Age: 8 Year
  Sex: Male
  Weight: 31.7518 kg

DRUGS (2)
  1. NOVOLOG [Suspect]
     Indication: DIABETES MELLITUS
  2. LANTUS [Suspect]
     Indication: DIABETES MELLITUS

REACTIONS (2)
  - MEDICATION ERROR [None]
  - WRONG DRUG ADMINISTERED [None]
